FAERS Safety Report 19929606 (Version 2)
Quarter: 2021Q4

REPORT INFORMATION
  Report Type: Spontaneous
  Country: HU (occurrence: HU)
  Receive Date: 20211007
  Receipt Date: 20211028
  Transmission Date: 20220303
  Serious: Yes (Death, Other)
  Sender: FDA-Public Use
  Company Number: HU-AMGEN-HUNSP2021152318

PATIENT

DRUGS (1)
  1. DARBEPOETIN ALFA [Suspect]
     Active Substance: DARBEPOETIN ALFA
     Indication: Nephrogenic anaemia
     Dosage: UNK
     Route: 065

REACTIONS (28)
  - Death [Fatal]
  - Sudden death [Fatal]
  - Acute coronary syndrome [Fatal]
  - Cardiopulmonary failure [Fatal]
  - Intestinal ischaemia [Fatal]
  - Cardiac failure [Fatal]
  - Disease progression [Fatal]
  - Cardiac arrest [Fatal]
  - Pneumonia [Fatal]
  - Sepsis [Fatal]
  - Acute myocardial infarction [Fatal]
  - Myocardial infarction [Fatal]
  - Atrial fibrillation [Unknown]
  - Thrombosis [Unknown]
  - Arteriovenous fistula [Unknown]
  - Hyperparathyroidism secondary [Unknown]
  - Muscle spasms [Unknown]
  - Iron deficiency [Unknown]
  - Viral upper respiratory tract infection [Unknown]
  - Anaemia [Unknown]
  - Diarrhoea [Unknown]
  - Upper respiratory tract infection [Unknown]
  - Bronchitis [Unknown]
  - Nausea [Unknown]
  - Headache [Unknown]
  - Hypotension [Unknown]
  - Arteriovenous fistula site complication [Unknown]
  - Hypertension [Unknown]
